FAERS Safety Report 10376443 (Version 1)
Quarter: 2014Q3

REPORT INFORMATION
  Report Type: Spontaneous
  Country: GB (occurrence: None)
  Receive Date: 20140806
  Receipt Date: 20140806
  Transmission Date: 20150326
  Serious: Yes (Hospitalization, Other)
  Sender: FDA-Public Use
  Company Number: AUR-APL-2014-08273

PATIENT
  Age: 24 Year
  Sex: Female
  Weight: 77.6 kg

DRUGS (1)
  1. SERTRALINE [Suspect]
     Active Substance: SERTRALINE HYDROCHLORIDE
     Indication: ANXIETY
     Route: 048

REACTIONS (5)
  - Flat affect [None]
  - Gastrooesophageal reflux disease [None]
  - Depression suicidal [None]
  - Apathy [None]
  - Oesophageal injury [None]
